FAERS Safety Report 6567918-5 (Version None)
Quarter: 2010Q1

REPORT INFORMATION
  Report Type: 
  Country: None (occurrence: None)
  Receive Date: 20100203
  Receipt Date: 20100125
  Transmission Date: 20100710
  Serious: Yes (Other)
  Sender: FDA-Public Use
  Company Number: US-JNJFOC-20100111003

PATIENT
  Sex: Female
  Weight: 68.04 kg

DRUGS (4)
  1. MOTRIN IB [Suspect]
     Indication: HEADACHE
  2. MOTRIN IB [Suspect]
     Indication: ORAL PAIN
  3. EXTRA STRENGTH TYLENOL [Suspect]
     Indication: HEADACHE
  4. EXTRA STRENGTH TYLENOL [Suspect]
     Indication: ORAL PAIN

REACTIONS (5)
  - CANDIDIASIS [None]
  - OCULAR HYPERAEMIA [None]
  - PRODUCT QUALITY ISSUE [None]
  - STEVENS-JOHNSON SYNDROME [None]
  - VIRAL INFECTION [None]
